FAERS Safety Report 22071473 (Version 1)
Quarter: 2023Q1

REPORT INFORMATION
  Report Type: Spontaneous
  Country: TW (occurrence: TW)
  Receive Date: 20230307
  Receipt Date: 20230307
  Transmission Date: 20230418
  Serious: Yes (Death)
  Sender: FDA-Public Use
  Company Number: TW-BAYER-2023A029086

PATIENT

DRUGS (1)
  1. STIVARGA [Suspect]
     Active Substance: REGORAFENIB

REACTIONS (1)
  - Death [Fatal]
